FAERS Safety Report 17422424 (Version 2)
Quarter: 2020Q1

REPORT INFORMATION
  Report Type: Spontaneous
  Country: IN (occurrence: IN)
  Receive Date: 20200215
  Receipt Date: 20200225
  Transmission Date: 20200409
  Serious: Yes (Hospitalization, Other)
  Sender: FDA-Public Use
  Company Number: IN-BRISTOL-MYERS SQUIBB COMPANY-BMS-2020-011039

PATIENT
  Age: 62 Year
  Sex: Female

DRUGS (1)
  1. TRIAMCINOLONE ACETONIDE. [Suspect]
     Active Substance: TRIAMCINOLONE ACETONIDE
     Indication: POST PROCEDURAL INFLAMMATION
     Dosage: 40 MG/ML
     Route: 031

REACTIONS (6)
  - Cataract [Unknown]
  - Intentional product use issue [Unknown]
  - Scleral degeneration [Recovered/Resolved]
  - Corneal opacity [Unknown]
  - Aspergillus infection [Recovered/Resolved]
  - Keratitis fungal [Recovered/Resolved]
